FAERS Safety Report 13177801 (Version 3)
Quarter: 2017Q2

REPORT INFORMATION
  Report Type: Spontaneous
  Country: US (occurrence: US)
  Receive Date: 20170201
  Receipt Date: 20170613
  Transmission Date: 20170830
  Serious: Yes (Hospitalization, Other)
  Sender: FDA-Public Use
  Company Number: US-CELGENEUS-USA-2017018537

PATIENT
  Age: 81 Year
  Sex: Male

DRUGS (1)
  1. REVLIMID [Suspect]
     Active Substance: LENALIDOMIDE
     Indication: PLASMA CELL MYELOMA
     Dosage: 25 MILLIGRAM
     Route: 048
     Dates: start: 20161205

REACTIONS (5)
  - Weight decreased [Unknown]
  - Dehydration [Unknown]
  - Fall [Unknown]
  - Cholangiocarcinoma [Unknown]
  - Constipation [Unknown]

NARRATIVE: CASE EVENT DATE: 20170119
